FAERS Safety Report 9761505 (Version 2)
Quarter: 2013Q4

REPORT INFORMATION
  Report Type: Spontaneous
  Country: US (occurrence: US)
  Receive Date: 20131216
  Receipt Date: 20131216
  Transmission Date: 20140711
  Serious: Yes (Other)
  Sender: FDA-Public Use
  Company Number: US-ABBVIE-13P-163-1062585-00

PATIENT
  Age: 68 Year
  Sex: Female

DRUGS (7)
  1. PROMETRIUM [Suspect]
     Indication: PREVENTION OF ENDOMETRIAL HYPERPLASIA
     Dosage: ON DAYS 1 - 12 EACH MONTH
     Route: 048
     Dates: start: 201107
  2. PROMETRIUM [Suspect]
     Dosage: ON DAYS 1-12 EVERY THREE MONTHS
     Route: 048
     Dates: start: 201212
  3. ESTROGENS CONJUGATED [Suspect]
     Indication: MENOPAUSAL DEPRESSION
     Dates: end: 201107
  4. ESTROGENS CONJUGATED [Suspect]
     Indication: ANXIETY
  5. DIVIGEL [Suspect]
     Indication: MENOPAUSAL DEPRESSION
     Route: 061
     Dates: start: 201107
  6. DIVIGEL [Suspect]
     Indication: ANXIETY
  7. PROVERA [Suspect]
     Indication: PREVENTION OF ENDOMETRIAL HYPERPLASIA
     Dates: end: 201107

REACTIONS (1)
  - Endometrial cancer stage I [Unknown]
